FAERS Safety Report 9078385 (Version 24)
Quarter: 2020Q1

REPORT INFORMATION
  Report Type: Report from Study
  Country: CA (occurrence: CA)
  Receive Date: 20130130
  Receipt Date: 20200225
  Transmission Date: 20200409
  Serious: Yes (Hospitalization, Other)
  Sender: FDA-Public Use
  Company Number: CA-ROCHE-1184653

PATIENT
  Age: 80 Year
  Sex: Female
  Weight: 57 kg

DRUGS (28)
  1. SYNTHROID [Concomitant]
     Active Substance: LEVOTHYROXINE SODIUM
  2. METHYLPREDNISOLONE. [Concomitant]
     Active Substance: METHYLPREDNISOLONE
     Route: 042
     Dates: start: 20120612
  3. TRAMACET [Concomitant]
     Active Substance: ACETAMINOPHEN\TRAMADOL
  4. ACETAMINOPHEN. [Concomitant]
     Active Substance: ACETAMINOPHEN
     Route: 065
     Dates: start: 20130122
  5. METHOTREXATE. [Concomitant]
     Active Substance: METHOTREXATE
     Route: 058
  6. FOLIC ACID. [Concomitant]
     Active Substance: FOLIC ACID
  7. RITUXAN [Suspect]
     Active Substance: RITUXIMAB
     Indication: RHEUMATOID ARTHRITIS
     Dosage: LAST DOSE OF RITUXIMAB WAS ON 07/NOV/2014?LAST DOSE OF RITUXIMAB WAS ON 23/NOV/2015?LAST DOSE OF RIT
     Route: 042
     Dates: start: 20120612
  8. ONGLYZA [Concomitant]
     Active Substance: SAXAGLIPTIN HYDROCHLORIDE
  9. PANTOLOC [PANTOPRAZOLE] [Concomitant]
     Active Substance: PANTOPRAZOLE SODIUM
  10. TYLENOL [Concomitant]
     Active Substance: ACETAMINOPHEN
     Indication: PREMEDICATION
     Route: 048
     Dates: start: 20120612
  11. ACETAMINOPHEN. [Concomitant]
     Active Substance: ACETAMINOPHEN
     Indication: PREMEDICATION
     Route: 048
     Dates: start: 20120612, end: 20120626
  12. ASAPHEN [Concomitant]
     Active Substance: ASPIRIN
  13. PRAVASTATIN. [Concomitant]
     Active Substance: PRAVASTATIN
  14. LINUM USITATISSIMUM [Concomitant]
  15. METFORMIN [Concomitant]
     Active Substance: METFORMIN HYDROCHLORIDE
     Route: 065
  16. FOSAMAX [Concomitant]
     Active Substance: ALENDRONATE SODIUM
  17. CELEBREX [Concomitant]
     Active Substance: CELECOXIB
  18. DIOVAN [Concomitant]
     Active Substance: VALSARTAN
  19. BENADRYL [Concomitant]
     Active Substance: DIPHENHYDRAMINE HYDROCHLORIDE
     Indication: PREMEDICATION
     Route: 048
     Dates: start: 20120612
  20. APO DOXY [Concomitant]
     Active Substance: DOXYCYCLINE HYDROCHLORIDE
  21. PREDNISONE. [Concomitant]
     Active Substance: PREDNISONE
     Route: 065
     Dates: start: 20140403
  22. ESOMEPRAZOLE. [Concomitant]
     Active Substance: ESOMEPRAZOLE MAGNESIUM
     Route: 065
  23. SOLU-MEDROL [Concomitant]
     Active Substance: METHYLPREDNISOLONE SODIUM SUCCINATE
     Indication: PREMEDICATION
     Route: 042
     Dates: start: 20120612
  24. PLAQUENIL [Concomitant]
     Active Substance: HYDROXYCHLOROQUINE SULFATE
  25. FLAXSEED [Concomitant]
     Active Substance: FLAX SEED
  26. GLUCOPHAGE [Concomitant]
     Active Substance: METFORMIN HYDROCHLORIDE
  27. XALATAN [Concomitant]
     Active Substance: LATANOPROST
  28. COMBIVENT [Concomitant]
     Active Substance: ALBUTEROL SULFATE\IPRATROPIUM BROMIDE

REACTIONS (37)
  - Urinary tract infection [Recovered/Resolved]
  - Back pain [Recovering/Resolving]
  - Pyrexia [Recovered/Resolved]
  - Seasonal allergy [Unknown]
  - Hypersensitivity [Not Recovered/Not Resolved]
  - Oxygen saturation decreased [Unknown]
  - Pain [Not Recovered/Not Resolved]
  - Fatigue [Unknown]
  - Nodule [Recovered/Resolved]
  - Headache [Recovered/Resolved]
  - Limb injury [Not Recovered/Not Resolved]
  - Nodule [Not Recovered/Not Resolved]
  - Blood pressure fluctuation [Unknown]
  - Nausea [Recovered/Resolved]
  - Drug hypersensitivity [Unknown]
  - Lacrimation increased [Unknown]
  - Hepatic enzyme increased [Not Recovered/Not Resolved]
  - Off label use [Unknown]
  - Intentional product use issue [Unknown]
  - White blood cell count increased [Not Recovered/Not Resolved]
  - Weight decreased [Not Recovered/Not Resolved]
  - Rhinorrhoea [Unknown]
  - Sinusitis [Unknown]
  - Increased appetite [Not Recovered/Not Resolved]
  - Peripheral swelling [Not Recovered/Not Resolved]
  - Vomiting [Recovered/Resolved]
  - Chills [Recovered/Resolved]
  - Tremor [Recovered/Resolved]
  - Arthralgia [Not Recovered/Not Resolved]
  - Migraine [Recovered/Resolved]
  - Musculoskeletal stiffness [Not Recovered/Not Resolved]
  - Hypotension [Unknown]
  - Blood pressure increased [Unknown]
  - Musculoskeletal disorder [Recovered/Resolved]
  - Kidney infection [Recovered/Resolved]
  - Infusion related reaction [Unknown]
  - Blood pressure diastolic decreased [Unknown]

NARRATIVE: CASE EVENT DATE: 2013
